FAERS Safety Report 8829275 (Version 1)
Quarter: 2012Q4

REPORT INFORMATION
  Report Type: 
  Country: BE (occurrence: BE)
  Receive Date: 20121008
  Receipt Date: 20121008
  Transmission Date: 20130627
  Serious: Yes (Life-Threatening, Hospitalization)
  Sender: FDA-Public Use
  Company Number: BE-B.I. PHARMACEUTICALS,INC./RIDGEFIELD-2012-BL-00520BL

PATIENT
  Age: 87 Year
  Sex: Male
  Weight: 80 kg

DRUGS (4)
  1. PRADAXA [Suspect]
     Indication: CARDIAC ANEURYSM
     Dosage: 300 mg
     Route: 048
     Dates: start: 20120730
  2. LISINOPRIL [Concomitant]
     Indication: HYPERTENSION
     Dosage: 5 mg
     Route: 048
  3. TERAZOSABB [Concomitant]
     Indication: BENIGN PROSTATIC HYPERPLASIA
     Dosage: 5 mg
     Route: 048
  4. FINASTERIDE [Concomitant]
     Indication: BENIGN PROSTATIC HYPERPLASIA
     Dosage: 5 mg
     Route: 048

REACTIONS (6)
  - Acetabulum fracture [Unknown]
  - Retroperitoneal haemorrhage [Unknown]
  - Myocardial ischaemia [Unknown]
  - Anaemia [Unknown]
  - Hypovolaemic shock [Unknown]
  - Renal failure [Unknown]
